FAERS Safety Report 7684279-9 (Version None)
Quarter: 2011Q3

REPORT INFORMATION
  Report Type: 
  Country: None (occurrence: None)
  Receive Date: 20110815
  Receipt Date: 20110801
  Transmission Date: 20111222
  Serious: No
  Sender: FDA-Public Use
  Company Number: US-B.I. PHARMACEUTICALS,INC./RIDGEFIELD-2011-BP-13105BP

PATIENT
  Sex: Female
  Weight: 71.21 kg

DRUGS (4)
  1. PRAVASTATIN [Concomitant]
     Dosage: 10 MG
  2. LEVOTHYROXINE SODIUM [Concomitant]
     Dosage: 88 MCG
  3. PRADAXA [Suspect]
     Indication: ATRIAL FIBRILLATION
     Dosage: 300 MG
     Route: 048
     Dates: start: 20110410
  4. ATENOLOL [Concomitant]
     Dosage: 25 MG

REACTIONS (2)
  - OSTEOARTHRITIS [None]
  - ARTHRITIS [None]
